FAERS Safety Report 4326444-4 (Version None)
Quarter: 2004Q1

REPORT INFORMATION
  Report Type: 
  Country: None (occurrence: None)
  Receive Date: 20040329
  Receipt Date: 20040329
  Transmission Date: 20041129
  Serious: Yes (Disabling)
  Sender: FDA-Public Use
  Company Number: None

PATIENT
  Age: 50 Year
  Sex: Male
  Weight: 81.6475 kg

DRUGS (1)
  1. TRICOR [Suspect]
     Dosage: 1 TABLET ONCE PER D ORAL
     Route: 048
     Dates: start: 20031201, end: 20040124

REACTIONS (10)
  - ABASIA [None]
  - ASTHENIA [None]
  - BLADDER SPASM [None]
  - DYSSTASIA [None]
  - GAIT DISTURBANCE [None]
  - MUSCLE SPASMS [None]
  - MYALGIA [None]
  - PAIN [None]
  - PELVIC PAIN [None]
  - URINARY TRACT INFECTION [None]
